FAERS Safety Report 8261550 (Version 2)
Quarter: 2012Q4

REPORT INFORMATION
  Report Type: 
  Country: US (occurrence: US)
  Receive Date: 20111123
  Receipt Date: 20120920
  Transmission Date: 20130627
  Serious: Yes (Hospitalization)
  Sender: FDA-Public Use
  Company Number: US-US-EMD SERONO, INC.-7097208

PATIENT
  Age: 53 None
  Sex: Male
  Weight: 95 kg

DRUGS (8)
  1. REBIF [Suspect]
     Indication: MULTIPLE SCLEROSIS
     Route: 058
     Dates: start: 20050618
  2. LIPITOR [Concomitant]
     Indication: BLOOD CHOLESTEROL INCREASED
  3. DILANTIN [Concomitant]
     Indication: CONVULSION
  4. KEPPRA [Concomitant]
     Indication: CONVULSION
  5. NEURONTIN [Concomitant]
     Indication: PAIN
  6. NEURONTIN [Concomitant]
     Indication: CONVULSION
  7. PAXIL [Concomitant]
     Indication: DEPRESSION
  8. ISOSORBIDE [Concomitant]
     Indication: CORONARY ARTERY DISEASE

REACTIONS (6)
  - Coronary artery occlusion [Recovered/Resolved]
  - Loss of consciousness [Recovered/Resolved]
  - Haemorrhage [Recovering/Resolving]
  - Anticonvulsant drug level abnormal [Recovering/Resolving]
  - Head injury [Recovering/Resolving]
  - Fall [Recovering/Resolving]
